FAERS Safety Report 8779835 (Version 1)
Quarter: 2012Q4

REPORT INFORMATION
  Report Type: 
  Country: FR (occurrence: FR)
  Receive Date: 20120912
  Receipt Date: 20120912
  Transmission Date: 20130627
  Serious: Yes (Hospitalization)
  Sender: FDA-Public Use
  Company Number: FR-ASTRAZENECA-2012SE70396

PATIENT
  Sex: Male

DRUGS (3)
  1. CRESTOR [Suspect]
     Route: 048
     Dates: end: 20120325
  2. COLCHIMAX [Interacting]
     Route: 048
     Dates: start: 20120223, end: 20120325
  3. ADENURIC [Suspect]
     Route: 048
     Dates: start: 20120223, end: 20120325

REACTIONS (3)
  - Drug interaction [Unknown]
  - Pneumonia [Unknown]
  - Rhabdomyolysis [Recovering/Resolving]
